FAERS Safety Report 18296896 (Version 1)
Quarter: 2020Q3

REPORT INFORMATION
  Report Type: Spontaneous
  Country: CN (occurrence: CN)
  Receive Date: 20200922
  Receipt Date: 20200922
  Transmission Date: 20201103
  Serious: Yes (Other)
  Sender: FDA-Public Use
  Company Number: CN-BAXTER-2020BAX019077

PATIENT
  Age: 19 Year
  Sex: Female
  Weight: 42.5 kg

DRUGS (4)
  1. ENDOXAN [Suspect]
     Active Substance: CYCLOPHOSPHAMIDE
     Dosage: DOSE RE?INTRODUCED, CYCLOPHOSPHAMIDE 2550 MG + 0.9% SODIUM CHLORIDE INJECTION 250 ML.
     Route: 041
     Dates: start: 20200905
  2. 0.9% SODIUM CHLORIDE INJECTION [Suspect]
     Active Substance: SODIUM CHLORIDE
     Dosage: DOSE RE?INTRODUCED, CYCLOPHOSPHAMIDE 2550 MG + 0.9% SODIUM CHLORIDE INJECTION 250 ML.
     Route: 041
     Dates: start: 20200905
  3. ENDOXAN [Suspect]
     Active Substance: CYCLOPHOSPHAMIDE
     Indication: ACUTE LYMPHOCYTIC LEUKAEMIA
     Dosage: 0.9% SODIUM CHLORIDE INJECTION 250ML + CYCLOPHOSPHAMIDE INJECTION 2550 MG
     Route: 041
     Dates: start: 20200904, end: 20200904
  4. 0.9% SODIUM CHLORIDE INJECTION [Suspect]
     Active Substance: SODIUM CHLORIDE
     Indication: MEDICATION DILUTION
     Dosage: (0.9% SODIUM CHLORIDE INJECTION 250ML + CYCLOPHOSPHAMIDE INJECTION 2550 MG)
     Route: 041
     Dates: start: 20200904, end: 20200904

REACTIONS (3)
  - Chest pain [Recovering/Resolving]
  - Gastrointestinal disorder [Recovering/Resolving]
  - Rash [Recovering/Resolving]

NARRATIVE: CASE EVENT DATE: 20200904
